FAERS Safety Report 9320541 (Version 3)
Quarter: 2013Q3

REPORT INFORMATION
  Report Type: Report from Study
  Country: CA (occurrence: CA)
  Receive Date: 20130531
  Receipt Date: 20130923
  Transmission Date: 20140515
  Serious: Yes (Hospitalization)
  Sender: FDA-Public Use
  Company Number: CA-ROCHE-1230136

PATIENT
  Age: 56 Year
  Sex: Female
  Weight: 100 kg

DRUGS (19)
  1. ACTEMRA [Suspect]
     Indication: RHEUMATOID ARTHRITIS
     Dosage: STARTING DOSE: 8 MG/KG
     Route: 042
     Dates: start: 20120530
  2. ACTEMRA [Suspect]
     Route: 042
     Dates: start: 20130211
  3. ACTEMRA [Suspect]
     Route: 042
     Dates: start: 20130410
  4. ACTEMRA [Suspect]
     Route: 042
     Dates: start: 20130312
  5. ACTEMRA [Suspect]
     Route: 042
     Dates: end: 20130507
  6. DIOVAN [Concomitant]
     Indication: HYPERTENSION
     Route: 048
  7. VITAMIN C [Concomitant]
  8. VITAMIN A [Concomitant]
  9. VITAMIN E [Concomitant]
  10. OMEGA 3 [Concomitant]
  11. PROBIOTIC (ENZYMES, INC) [Concomitant]
  12. FOLIC ACID [Concomitant]
  13. PSYLLIUM [Concomitant]
  14. GENKORT [Concomitant]
  15. CALMAG PLUS [Concomitant]
  16. KEPPRA [Concomitant]
  17. PREDNISONE [Concomitant]
     Indication: RHEUMATOID ARTHRITIS
     Route: 048
  18. FERROUS GLUCONATE [Concomitant]
     Route: 048
  19. TECTA [Concomitant]

REACTIONS (3)
  - Diverticulitis [Recovered/Resolved]
  - Pruritus [Unknown]
  - Skin discolouration [Unknown]
